FAERS Safety Report 8064653-1 (Version None)
Quarter: 2012Q1

REPORT INFORMATION
  Report Type: 
  Country: None (occurrence: None)
  Receive Date: 20120123
  Receipt Date: 20120112
  Transmission Date: 20120608
  Serious: Yes (Hospitalization)
  Sender: FDA-Public Use
  Company Number: CA-ASTRAZENECA-2011SE58155

PATIENT
  Age: 72 Year
  Sex: Male

DRUGS (4)
  1. TENORETIC 100 [Suspect]
     Route: 048
  2. HYDROCHLOROTHIAZIDE [Concomitant]
     Indication: BLOOD PRESSURE ABNORMAL
     Route: 048
     Dates: start: 20110801
  3. TENORETIC 100 [Suspect]
     Indication: HYPERTENSION
     Dosage: 50+25 MG ONCE DAILY
     Route: 048
     Dates: start: 20110705, end: 20110729
  4. TENORMIN [Concomitant]
     Indication: HYPERTENSION
     Route: 048
     Dates: start: 20110801

REACTIONS (2)
  - ATRIOVENTRICULAR BLOCK COMPLETE [None]
  - DIZZINESS [None]
